FAERS Safety Report 12802017 (Version 1)
Quarter: 2016Q3

REPORT INFORMATION
  Report Type: Spontaneous
  Country: US (occurrence: US)
  Receive Date: 20160930
  Receipt Date: 20160930
  Transmission Date: 20161109
  Serious: Yes (Other)
  Sender: FDA-Public Use
  Company Number: None

PATIENT
  Age: 26 Year
  Sex: Female

DRUGS (3)
  1. MAKENA [Suspect]
     Active Substance: HYDROXYPROGESTERONE CAPROATE
     Indication: PREMATURE LABOUR
     Dosage: ?          OTHER FREQUENCY:EVERY 7 DAYS;?
     Route: 030
     Dates: start: 20160811, end: 20160930
  2. ONDANSETRON [Concomitant]
     Active Substance: ONDANSETRON
  3. PRENATAL/IRON [Concomitant]

REACTIONS (4)
  - Hyperhidrosis [None]
  - Nausea [None]
  - Chest pain [None]
  - Cough [None]

NARRATIVE: CASE EVENT DATE: 20160909
